FAERS Safety Report 5925529-6 (Version None)
Quarter: 2008Q4

REPORT INFORMATION
  Report Type: 
  Country: None (occurrence: None)
  Receive Date: 20081021
  Receipt Date: 20081014
  Transmission Date: 20090506
  Serious: Yes (Death)
  Sender: FDA-Public Use
  Company Number: PHHY2008DE24225

PATIENT
  Sex: Female

DRUGS (4)
  1. FEMARA [Suspect]
     Indication: BREAST CANCER
     Dosage: 2.5 MG, UNK
     Route: 048
     Dates: start: 20061114, end: 20071001
  2. EUTHYROX [Concomitant]
     Dosage: 1/2 - 0 - 0
     Route: 048
     Dates: start: 19970101
  3. CORVO [Concomitant]
     Dosage: 1/2 - 0 - 0
     Route: 048
     Dates: start: 20061001
  4. BISOPROLOL FUMARATE [Concomitant]
     Dosage: 1/2 - 0 - 0
     Route: 048
     Dates: start: 20070901

REACTIONS (4)
  - BONE DISORDER [None]
  - CARDIAC DEATH [None]
  - MALAISE [None]
  - SUDDEN DEATH [None]
